FAERS Safety Report 5324680-1 (Version None)
Quarter: 2007Q2

REPORT INFORMATION
  Report Type: 
  Country: None (occurrence: None)
  Receive Date: 20070509
  Receipt Date: 20070125
  Transmission Date: 20071010
  Serious: Yes (Life-Threatening)
  Sender: FDA-Public Use
  Company Number: TRP_00938_2007

PATIENT
  Sex: Male

DRUGS (11)
  1. AMPHOCIL / 00057502/ (AMPHOCIL/AMPHOTERICIN B CHOLESTERYL SULFATE COMP [Suspect]
     Indication: NON-HODGKIN'S LYMPHOMA
     Dosage: 40 MG QD , INTRAVENOUS
     Route: 042
     Dates: start: 20061016, end: 20061017
  2. COLISTIN SULFATE [Concomitant]
  3. CYMEVENE [Concomitant]
  4. TAZOCINRAN [Concomitant]
  5. ZYVOX [Concomitant]
  6. TACHYCARDIA [Concomitant]
  7. HYPERTENSION [Concomitant]
  8. TACHYPNOEA [Concomitant]
  9. DYSPNOEA [Concomitant]
  10. CHILLS [Concomitant]
  11. SEPSIS [Concomitant]

REACTIONS (7)
  - BRONCHOSPASM [None]
  - CHILLS [None]
  - DYSPNOEA [None]
  - HYPERTENSION [None]
  - SEPSIS [None]
  - TACHYCARDIA [None]
  - TACHYPNOEA [None]
